FAERS Safety Report 24399867 (Version 4)
Quarter: 2025Q1

REPORT INFORMATION
  Report Type: Report from Study
  Country: US (occurrence: US)
  Receive Date: 20241005
  Receipt Date: 20250318
  Transmission Date: 20250409
  Serious: Yes (Other)
  Sender: ABBVIE
  Company Number: US-ABBVIE-5949469

PATIENT
  Age: 79 Year
  Sex: Female

DRUGS (3)
  1. SKYRIZI [Suspect]
     Active Substance: RISANKIZUMAB-RZAA
     Indication: Immunodeficiency
     Route: 058
     Dates: start: 20240827, end: 20241012
  2. SKYRIZI [Suspect]
     Active Substance: RISANKIZUMAB-RZAA
     Indication: Psoriasis
     Route: 058
     Dates: start: 20240812
  3. SKYRIZI [Suspect]
     Active Substance: RISANKIZUMAB-RZAA
     Route: 058
     Dates: start: 20240901

REACTIONS (9)
  - Cholelithiasis [Unknown]
  - Gallbladder rupture [Unknown]
  - Yellow skin [Recovering/Resolving]
  - Abdominal pain upper [Unknown]
  - Abscess [Recovering/Resolving]
  - Immunodeficiency [Unknown]
  - Injection site injury [Recovering/Resolving]
  - Gastrointestinal disorder [Unknown]
  - Gallbladder disorder [Unknown]

NARRATIVE: CASE EVENT DATE: 20240101
